FAERS Safety Report 6079770-5 (Version None)
Quarter: 2009Q1

REPORT INFORMATION
  Report Type: 
  Country: None (occurrence: None)
  Receive Date: 20090211
  Receipt Date: 20090209
  Transmission Date: 20090719
  Serious: Yes (Other)
  Sender: FDA-Public Use
  Company Number: GB-EBEWE-0152FLUDARA09

PATIENT
  Age: 63 Year
  Sex: Female
  Weight: 65 kg

DRUGS (10)
  1. FLUDARABINE PHOSPHATE [Suspect]
     Indication: CHEMOTHERAPY
     Dosage: 50MG, INTRAVENOUS
     Route: 042
     Dates: start: 20080114, end: 20090118
  2. ACYCLOVIR [Concomitant]
  3. ALEMTUZUMAB [Concomitant]
  4. CIPROFLOXACIN [Concomitant]
  5. CYCLIZINE [Concomitant]
  6. HALOPERIDOL [Concomitant]
  7. ITRACONAZOLE [Concomitant]
  8. LANSOPRAZOLE [Concomitant]
  9. LISINOPRIL [Concomitant]
  10. ONDANSETRON [Concomitant]

REACTIONS (1)
  - ASPARTATE AMINOTRANSFERASE INCREASED [None]
